FAERS Safety Report 22338629 (Version 1)
Quarter: 2023Q2

REPORT INFORMATION
  Report Type: Spontaneous
  Country: US (occurrence: None)
  Receive Date: 20230518
  Receipt Date: 20230518
  Transmission Date: 20230722
  Serious: No
  Sender: FDA-Public Use
  Company Number: US-ROCHE-3245134

PATIENT
  Sex: Female

DRUGS (14)
  1. ACTEMRA [Suspect]
     Active Substance: TOCILIZUMAB
     Indication: Rheumatoid arthritis
     Route: 058
  2. ACTEMRA [Suspect]
     Active Substance: TOCILIZUMAB
  3. ACTEMRA [Suspect]
     Active Substance: TOCILIZUMAB
  4. ALBUTEROL [Concomitant]
     Active Substance: ALBUTEROL
  5. ALENDRONATE [Concomitant]
     Active Substance: ALENDRONATE SODIUM
  6. ASPIRIN [Concomitant]
     Active Substance: ASPIRIN
  7. FOLIC ACID [Concomitant]
     Active Substance: FOLIC ACID
     Dosage: 800MCG
  8. IPRATROPIUM [Concomitant]
     Active Substance: IPRATROPIUM
  9. CARVEDILOL [Concomitant]
     Active Substance: CARVEDILOL
  10. METHOTREXATE [Concomitant]
     Active Substance: METHOTREXATE
     Route: 048
  11. MONTELUKAST [Concomitant]
     Active Substance: MONTELUKAST SODIUM
  12. OMEGA 3 [Concomitant]
     Active Substance: CAPSAICIN
     Dosage: 340 MG
  13. SIMVASTATIN [Concomitant]
     Active Substance: SIMVASTATIN
  14. TOBRAMYCIN [Concomitant]
     Active Substance: TOBRAMYCIN

REACTIONS (1)
  - Asthma [Unknown]
